FAERS Safety Report 13259981 (Version 1)
Quarter: 2017Q1

REPORT INFORMATION
  Report Type: Spontaneous
  Country: US (occurrence: US)
  Receive Date: 20170222
  Receipt Date: 20170222
  Transmission Date: 20170428
  Serious: No
  Sender: FDA-Public Use
  Company Number: US-TEVA-645579USA

PATIENT
  Age: 7 Year
  Sex: Female

DRUGS (2)
  1. AMPHETAMINE W/DEXTROAMPHETAMINE [Suspect]
     Active Substance: AMPHETAMINE SULFATE\DEXTROAMPHETAMINE
     Indication: OBSESSIVE-COMPULSIVE DISORDER
     Dosage: 10 MILLIGRAM DAILY; EVERY MORNING
     Dates: start: 201509
  2. AMPHETAMINE W/DEXTROAMPHETAMINE [Suspect]
     Active Substance: AMPHETAMINE SULFATE\DEXTROAMPHETAMINE
     Indication: ATTENTION DEFICIT/HYPERACTIVITY DISORDER

REACTIONS (11)
  - Skin haemorrhage [Unknown]
  - Attention deficit/hyperactivity disorder [Unknown]
  - Restlessness [Unknown]
  - Drug ineffective [Unknown]
  - Screaming [Unknown]
  - Impulsive behaviour [Unknown]
  - Skin exfoliation [Unknown]
  - Obsessive-compulsive disorder [Unknown]
  - Sleep disorder [Unknown]
  - Pruritus [Unknown]
  - Mood swings [Unknown]

NARRATIVE: CASE EVENT DATE: 20160220
